FAERS Safety Report 4757029-3 (Version None)
Quarter: 2005Q3

REPORT INFORMATION
  Report Type: 
  Country: None (occurrence: None)
  Receive Date: 20050829
  Receipt Date: 20050829
  Transmission Date: 20060218
  Serious: Yes (Life-Threatening, Hospitalization)
  Sender: FDA-Public Use
  Company Number: None

PATIENT
  Sex: Male
  Weight: 102 kg

DRUGS (3)
  1. CYTOXAN [Suspect]
     Indication: MANTLE CELL LYMPHOMA
     Dates: start: 20041109, end: 20041206
  2. RITUXAN [Suspect]
     Indication: MANTLE CELL LYMPHOMA
     Dates: start: 20041109, end: 20041206
  3. METHOTREXATE [Suspect]

REACTIONS (2)
  - LUNG INFILTRATION [None]
  - PNEUMONITIS [None]
